FAERS Safety Report 13338807 (Version 1)
Quarter: 2017Q1

REPORT INFORMATION
  Report Type: Spontaneous
  Country: FR (occurrence: FR)
  Receive Date: 20170315
  Receipt Date: 20170315
  Transmission Date: 20170428
  Serious: Yes (Hospitalization, Other)
  Sender: FDA-Public Use
  Company Number: FR-ASTRAZENECA-2017SE26650

PATIENT
  Age: 25132 Day
  Sex: Male
  Weight: 96 kg

DRUGS (13)
  1. ESOMEPRAZOLE [Suspect]
     Active Substance: ESOMEPRAZOLE
     Dosage: BIOGARAN 20 MG DAILY
     Route: 048
  2. ATORVASTATIN [Suspect]
     Active Substance: ATORVASTATIN
     Dosage: BIOGARAN 40 MG DAILY
     Route: 048
     Dates: end: 20170228
  3. SODIUM BICARBONATE. [Suspect]
     Active Substance: SODIUM BICARBONATE
     Indication: ORAL DISORDER
     Route: 002
  4. AUGMENTIN [Suspect]
     Active Substance: AMOXICILLIN\CLAVULANATE POTASSIUM
     Indication: LUNG DISORDER
     Route: 048
     Dates: start: 20170223
  5. POLERY ADULTES [Suspect]
     Active Substance: CODEINE\SISYMBRIUM OFFICINALE WHOLE
     Dosage: 15 ML X3/DAY
     Route: 048
     Dates: start: 20170223
  6. GELUPRANE [Suspect]
     Active Substance: ACETAMINOPHEN
     Dosage: 500.0MG UNKNOWN
     Route: 048
     Dates: end: 20170223
  7. FLUIDABAK [Suspect]
     Active Substance: POVIDONE
     Dosage: 1.5% 1 DROP 4 TO 6 TIMES/DAY
     Route: 047
     Dates: end: 20170223
  8. ALIMTA [Suspect]
     Active Substance: PEMETREXED DISODIUM
     Indication: MESOTHELIOMA
     Route: 042
     Dates: start: 20170220, end: 20170220
  9. KARDEGIC [Suspect]
     Active Substance: ASPIRIN LYSINE
     Route: 048
     Dates: end: 20170228
  10. LACTULOSE. [Suspect]
     Active Substance: LACTULOSE
     Dosage: BIOGARAN 10G/15ML DAILY
     Route: 048
  11. ZOPICLONE [Suspect]
     Active Substance: ZOPICLONE
     Dosage: BIOGARAN 7.5 MG DAILY
     Route: 048
  12. SYMBICORT [Suspect]
     Active Substance: BUDESONIDE\FORMOTEROL FUMARATE DIHYDRATE
     Dosage: 200/6 UG TWO TIMES A DAY
     Route: 055
  13. AMLODIPINE [Suspect]
     Active Substance: AMLODIPINE BESYLATE
     Dosage: BIOGARAN 5 MG DAILY
     Route: 048
     Dates: end: 20170227

REACTIONS (5)
  - Dyspnoea [Unknown]
  - Lung disorder [Unknown]
  - Drug reaction with eosinophilia and systemic symptoms [Not Recovered/Not Resolved]
  - Hyperthermia [Unknown]
  - Toxic skin eruption [Unknown]

NARRATIVE: CASE EVENT DATE: 20170223
